FAERS Safety Report 9765038 (Version 4)
Quarter: 2014Q1

REPORT INFORMATION
  Report Type: Spontaneous
  Country: FR (occurrence: FR)
  Receive Date: 20131217
  Receipt Date: 20140206
  Transmission Date: 20141002
  Serious: Yes (Other)
  Sender: FDA-Public Use
  Company Number: FR-UCBSA-105846

PATIENT
  Sex: Male

DRUGS (2)
  1. VIMPAT [Suspect]
     Dosage: DOSE UNSPECIFIED
  2. OXCARBAZEPINE [Suspect]

REACTIONS (2)
  - Priapism [Unknown]
  - Erection increased [Unknown]
